FAERS Safety Report 5514357-1 (Version None)
Quarter: 2007Q4

REPORT INFORMATION
  Report Type: 
  Country: None (occurrence: None)
  Receive Date: 20071113
  Receipt Date: 20070423
  Transmission Date: 20080405
  Serious: No
  Sender: FDA-Public Use
  Company Number: A0648360A

PATIENT
  Age: 58 Year
  Sex: Male

DRUGS (2)
  1. COREG [Suspect]
     Indication: HYPERTENSION
     Dosage: 6.25MG TWICE PER DAY
     Route: 048
     Dates: end: 20070419
  2. HYDROCHLOROTHIAZIDE [Concomitant]

REACTIONS (4)
  - ELEVATED MOOD [None]
  - PRURITUS [None]
  - RASH [None]
  - SWELLING [None]
